FAERS Safety Report 8094708-7 (Version None)
Quarter: 2012Q1

REPORT INFORMATION
  Report Type: 
  Country: None (occurrence: None)
  Receive Date: 20120129
  Receipt Date: 20111220
  Transmission Date: 20120608
  Serious: No
  Sender: FDA-Public Use
  Company Number: US-ABBOTT-11P-163-0885329-00

PATIENT
  Age: 68 Year
  Sex: Female

DRUGS (11)
  1. CALCIUM WITH VITAMIN D [Concomitant]
     Indication: OSTEOPOROSIS
     Dosage: 2 PILLS QAM 1 PILL QPM
     Route: 048
  2. GARLIC [Concomitant]
     Indication: PRODUCT USED FOR UNKNOWN INDICATION
     Dosage: DAILY
  3. VITAMIN B-12 [Concomitant]
     Indication: PRODUCT USED FOR UNKNOWN INDICATION
     Dosage: DAILY
     Route: 048
  4. VERAPAMIL [Concomitant]
     Indication: HYPERTENSION
     Dosage: DAILY
     Route: 048
  5. DYAZIDE [Concomitant]
     Indication: HYPERTENSION
     Dosage: 37-5-25 DAILY
     Route: 048
  6. FOSAMAX [Concomitant]
     Indication: OSTEOPOROSIS
     Route: 048
  7. HUMIRA [Suspect]
     Indication: PSORIASIS
     Dates: start: 20111031
  8. FISH OIL [Concomitant]
     Indication: PRODUCT USED FOR UNKNOWN INDICATION
     Dosage: DAILY
     Route: 048
  9. GLUCOSAMINE [Concomitant]
     Indication: PROPHYLAXIS
     Dosage: DAILY
     Route: 048
  10. LIPITOR [Concomitant]
     Indication: BLOOD CHOLESTEROL INCREASED
     Dosage: DAILY
     Route: 048
  11. ASPIRIN [Concomitant]
     Indication: PRODUCT USED FOR UNKNOWN INDICATION
     Dosage: DAILY
     Route: 048

REACTIONS (2)
  - INJECTION SITE HAEMORRHAGE [None]
  - CONDITION AGGRAVATED [None]
